FAERS Safety Report 18751554 (Version 4)
Quarter: 2023Q2

REPORT INFORMATION
  Report Type: Spontaneous
  Country: CA (occurrence: CA)
  Receive Date: 20210118
  Receipt Date: 20230518
  Transmission Date: 20230721
  Serious: Yes (Death, Other)
  Sender: FDA-Public Use
  Company Number: CA-ALLERGAN-2102194US

PATIENT
  Sex: Female

DRUGS (53)
  1. ASENAPINE MALEATE [Suspect]
     Active Substance: ASENAPINE MALEATE
     Indication: Schizophrenia
     Dosage: UNK
     Route: 066
  2. ASENAPINE MALEATE [Suspect]
     Active Substance: ASENAPINE MALEATE
     Dosage: UNK
  3. ASENAPINE MALEATE [Suspect]
     Active Substance: ASENAPINE MALEATE
     Dosage: 1 DF
  4. ABILIFY [Suspect]
     Active Substance: ARIPIPRAZOLE
     Indication: Schizophrenia
     Dosage: UNK
     Route: 065
  5. ABILIFY [Suspect]
     Active Substance: ARIPIPRAZOLE
     Indication: Product used for unknown indication
     Dosage: 1 DF
  6. ARIPIPRAZOLE [Suspect]
     Active Substance: ARIPIPRAZOLE
     Indication: Schizophrenia
     Dosage: 1 DF
  7. ARIPIPRAZOLE [Suspect]
     Active Substance: ARIPIPRAZOLE
     Indication: Product used for unknown indication
     Dosage: UNK
  8. ARIPIPRAZOLE [Suspect]
     Active Substance: ARIPIPRAZOLE
     Dosage: 1 DF, QD
  9. CLOZARIL [Suspect]
     Active Substance: CLOZAPINE
     Indication: Schizophrenia
     Dosage: UNK
  10. CLOZARIL [Suspect]
     Active Substance: CLOZAPINE
     Dosage: UNK
  11. FLUPENTIXOL [Suspect]
     Active Substance: FLUPENTIXOL
     Indication: Schizophrenia
     Dosage: UNK
     Route: 065
  12. FLUPENTIXOL [Suspect]
     Active Substance: FLUPENTIXOL
     Indication: Product used for unknown indication
     Dosage: UNK
     Route: 065
  13. LATUDA [Suspect]
     Active Substance: LURASIDONE HYDROCHLORIDE
     Indication: Schizophrenia
     Dosage: 1 DF
     Route: 048
  14. LATUDA [Suspect]
     Active Substance: LURASIDONE HYDROCHLORIDE
     Dosage: UNK
  15. LATUDA [Suspect]
     Active Substance: LURASIDONE HYDROCHLORIDE
     Dosage: UNK
  16. OLANZAPINE [Suspect]
     Active Substance: OLANZAPINE
     Indication: Schizophrenia
     Dosage: UNK
     Route: 065
  17. OLANZAPINE [Suspect]
     Active Substance: OLANZAPINE
     Dosage: UNK
     Route: 065
  18. OLANZAPINE [Suspect]
     Active Substance: OLANZAPINE
     Indication: Schizophrenia
     Dosage: UNK
     Route: 065
  19. PALIPERIDONE PALMITATE [Suspect]
     Active Substance: PALIPERIDONE PALMITATE
     Indication: Schizophrenia
     Dosage: UNK
  20. QUETIAPINE FUMARATE [Suspect]
     Active Substance: QUETIAPINE FUMARATE
     Indication: Schizophrenia
     Dosage: UNK
  21. QUETIAPINE FUMARATE [Suspect]
     Active Substance: QUETIAPINE FUMARATE
     Indication: Product used for unknown indication
     Dosage: UNK
     Route: 048
  22. QUETIAPINE FUMARATE [Suspect]
     Active Substance: QUETIAPINE FUMARATE
     Dosage: UNK
     Route: 048
  23. QUETIAPINE FUMARATE [Suspect]
     Active Substance: QUETIAPINE FUMARATE
     Dosage: UNK
  24. QUETIAPINE FUMARATE [Suspect]
     Active Substance: QUETIAPINE FUMARATE
     Dosage: 200 MG
     Route: 048
  25. RISPERIDONE [Suspect]
     Active Substance: RISPERIDONE
     Indication: Schizophrenia
     Dosage: 1 DF
     Route: 065
  26. RISPERIDONE [Suspect]
     Active Substance: RISPERIDONE
     Dosage: UNK
  27. RISPERIDONE [Suspect]
     Active Substance: RISPERIDONE
     Dosage: 1 DF, QD
  28. ZIPRASIDONE HYDROCHLORIDE [Suspect]
     Active Substance: ZIPRASIDONE HYDROCHLORIDE
     Indication: Schizophrenia
     Dosage: UNK
     Route: 065
  29. ZUCLOPENTHIXOL [Suspect]
     Active Substance: ZUCLOPENTHIXOL
     Indication: Schizophrenia
     Dosage: UNK
     Route: 065
  30. ZYPREXA [Suspect]
     Active Substance: OLANZAPINE
     Indication: Schizophrenia
     Dosage: UNK
  31. ZYPREXA [Suspect]
     Active Substance: OLANZAPINE
     Indication: Product used for unknown indication
     Dosage: UNK
  32. LURASIDONE HYDROCHLORIDE [Suspect]
     Active Substance: LURASIDONE HYDROCHLORIDE
     Indication: Schizophrenia
     Dosage: 1 DF
  33. LURASIDONE HYDROCHLORIDE [Suspect]
     Active Substance: LURASIDONE HYDROCHLORIDE
     Dosage: 1 DF, QD
  34. ZUCLOPENTHIXOL ACETATE [Suspect]
     Active Substance: ZUCLOPENTHIXOL ACETATE
     Indication: Schizophrenia
     Dosage: UNK
     Route: 065
  35. ZIPRASIDONE MESYLATE [Suspect]
     Active Substance: ZIPRASIDONE MESYLATE
     Indication: Schizophrenia
  36. ZUCLOPENTHIXOL DECANOATE [Suspect]
     Active Substance: ZUCLOPENTHIXOL DECANOATE
     Indication: Schizophrenia
     Dosage: UNK
  37. ZUCLOPENTHIXOL DECANOATE [Suspect]
     Active Substance: ZUCLOPENTHIXOL DECANOATE
     Dosage: UNK
  38. FLUPENTIXOL DIHYDROCHLORIDE [Suspect]
     Active Substance: FLUPENTIXOL DIHYDROCHLORIDE
     Indication: Schizophrenia
  39. LATUDA [Suspect]
     Active Substance: LURASIDONE HYDROCHLORIDE
     Indication: Schizophrenia
     Dosage: 1 DF, QD
  40. LATUDA [Suspect]
     Active Substance: LURASIDONE HYDROCHLORIDE
     Indication: Product used for unknown indication
     Dosage: UNK
  41. LATUDA [Suspect]
     Active Substance: LURASIDONE HYDROCHLORIDE
     Dosage: UNK
  42. LATUDA [Suspect]
     Active Substance: LURASIDONE HYDROCHLORIDE
     Dosage: UNK
  43. PALIPERIDONE [Suspect]
     Active Substance: PALIPERIDONE
     Indication: Product used for unknown indication
     Dosage: UNK
  44. PALIPERIDONE [Suspect]
     Active Substance: PALIPERIDONE
     Indication: Schizophrenia
     Dosage: UNK
  45. PALIPERIDONE [Suspect]
     Active Substance: PALIPERIDONE
     Dosage: 1 DF
  46. PALIPERIDONE [Suspect]
     Active Substance: PALIPERIDONE
     Dosage: 1 DF
  47. PALIPERIDONE [Suspect]
     Active Substance: PALIPERIDONE
     Dosage: 1 DF, QD
  48. PALIPERIDONE [Suspect]
     Active Substance: PALIPERIDONE
     Dosage: UNK
  49. PALIPERIDONE [Suspect]
     Active Substance: PALIPERIDONE
     Dosage: UNK
  50. PALIPERIDONE [Suspect]
     Active Substance: PALIPERIDONE
     Dosage: UNK
  51. PALIPERIDONE [Suspect]
     Active Substance: PALIPERIDONE
     Dosage: UNK
  52. RISPERDAL [Concomitant]
     Active Substance: RISPERIDONE
     Indication: Product used for unknown indication
  53. INVEGA [Concomitant]
     Active Substance: PALIPERIDONE
     Indication: Product used for unknown indication

REACTIONS (16)
  - Anosognosia [Fatal]
  - Condition aggravated [Fatal]
  - Personality change [Fatal]
  - Sexual dysfunction [Fatal]
  - Disturbance in social behaviour [Fatal]
  - Suicide attempt [Fatal]
  - Completed suicide [Fatal]
  - Personality change due to a general medical condition [Unknown]
  - Blood prolactin abnormal [Fatal]
  - Metabolic disorder [Fatal]
  - Dystonia [Fatal]
  - Dyskinesia [Fatal]
  - Sedation [Fatal]
  - Blood glucose increased [Fatal]
  - Schizophrenia [Fatal]
  - Drug ineffective [Unknown]
